FAERS Safety Report 4370087-3 (Version None)
Quarter: 2004Q2

REPORT INFORMATION
  Report Type: 
  Country: None (occurrence: None)
  Receive Date: 20040527
  Receipt Date: 20040514
  Transmission Date: 20050107
  Serious: Yes (Hospitalization)
  Sender: FDA-Public Use
  Company Number: GB-JNJFOC-20040400916

PATIENT
  Age: 58 Year
  Sex: Female

DRUGS (8)
  1. REMICADE [Suspect]
     Indication: RHEUMATOID ARTHRITIS
     Dosage: 218 MG, INTRAVENOUS
     Route: 042
     Dates: start: 20020201
  2. METHOTREXATE [Concomitant]
  3. ATENOLOL [Concomitant]
  4. ADALAT [Concomitant]
  5. AMLODIPINE [Concomitant]
  6. BENDROFLUAZIDE (BENDROFLUMETHIAZIDE) [Concomitant]
  7. PREMPAK C (PREMPAK /OLD FORM/) [Concomitant]
  8. CO-PROXAMOL (APOREX) [Concomitant]

REACTIONS (3)
  - DEEP VEIN THROMBOSIS [None]
  - KNEE ARTHROPLASTY [None]
  - POSTOPERATIVE THROMBOSIS [None]
